FAERS Safety Report 15373861 (Version 2)
Quarter: 2019Q1

REPORT INFORMATION
  Report Type: Report from Study
  Country: US (occurrence: US)
  Receive Date: 20180912
  Receipt Date: 20190228
  Transmission Date: 20190417
  Serious: No
  Sender: FDA-Public Use
  Company Number: PHHY2018US095916

PATIENT
  Sex: Female

DRUGS (2)
  1. COSENTYX [Suspect]
     Active Substance: SECUKINUMAB
     Indication: PSORIATIC ARTHROPATHY
  2. COSENTYX [Suspect]
     Active Substance: SECUKINUMAB
     Indication: PSORIASIS
     Dosage: 150 MG, QMO
     Route: 058

REACTIONS (8)
  - Drug effect incomplete [Unknown]
  - Arthralgia [Unknown]
  - Depression [Unknown]
  - Psoriasis [Unknown]
  - Cough [Unknown]
  - Dysphonia [Unknown]
  - Pain [Unknown]
  - Throat irritation [Not Recovered/Not Resolved]
